FAERS Safety Report 23240250 (Version 1)
Quarter: 2023Q4

REPORT INFORMATION
  Report Type: Report from Study
  Country: US (occurrence: US)
  Receive Date: 20231129
  Receipt Date: 20231129
  Transmission Date: 20240109
  Serious: Yes (Other)
  Sender: FDA-Public Use
  Company Number: US-JNJFOC-20231164278

PATIENT
  Age: 82 Year
  Sex: Male

DRUGS (2)
  1. ABIRATERONE ACETATE [Suspect]
     Active Substance: ABIRATERONE ACETATE
     Indication: Prostate cancer
     Route: 048
  2. FIRMAGON [Concomitant]
     Active Substance: DEGARELIX ACETATE

REACTIONS (2)
  - Pulmonary fibrosis [Unknown]
  - Fatigue [Unknown]
